FAERS Safety Report 13464853 (Version 1)
Quarter: 2017Q2

REPORT INFORMATION
  Report Type: Spontaneous
  Country: US (occurrence: US)
  Receive Date: 20170420
  Receipt Date: 20170420
  Transmission Date: 20170830
  Serious: No
  Sender: FDA-Public Use
  Company Number: US-ASTRAZENECA-2017SE38716

PATIENT
  Sex: Female
  Weight: 77.6 kg

DRUGS (9)
  1. ELIIQUIS [Concomitant]
     Indication: ATRIAL FIBRILLATION
  2. DILTIAZEM. [Concomitant]
     Active Substance: DILTIAZEM
     Indication: ATRIAL FIBRILLATION
  3. DILTIAZEM. [Concomitant]
     Active Substance: DILTIAZEM
     Indication: BLOOD PRESSURE ABNORMAL
  4. METOPROLOL TARTRATE. [Suspect]
     Active Substance: METOPROLOL TARTRATE
     Route: 048
  5. VERAPAMIL [Concomitant]
     Active Substance: VERAPAMIL HYDROCHLORIDE
     Indication: BLOOD PRESSURE ABNORMAL
  6. SIMVASTATIN. [Concomitant]
     Active Substance: SIMVASTATIN
  7. ELIIQUIS [Concomitant]
     Indication: BLOOD PRESSURE ABNORMAL
  8. ROSUVASTATIN CALCIUM. [Suspect]
     Active Substance: ROSUVASTATIN CALCIUM
     Indication: BLOOD CHOLESTEROL
     Route: 048
     Dates: start: 201703, end: 201704
  9. ROSUVASTATIN CALCIUM. [Suspect]
     Active Substance: ROSUVASTATIN CALCIUM
     Indication: BLOOD CHOLESTEROL
     Route: 048
     Dates: start: 201704

REACTIONS (12)
  - Visual impairment [Unknown]
  - Chest pain [Recovered/Resolved]
  - Dizziness [Unknown]
  - Skin discolouration [Unknown]
  - Amnesia [Unknown]
  - Pruritus [Not Recovered/Not Resolved]
  - Decreased appetite [Not Recovered/Not Resolved]
  - Breast discharge [Not Recovered/Not Resolved]
  - Overweight [Unknown]
  - Rash [Unknown]
  - Muscular weakness [Not Recovered/Not Resolved]
  - Fatigue [Not Recovered/Not Resolved]
